FAERS Safety Report 7666027-1 (Version None)
Quarter: 2011Q3

REPORT INFORMATION
  Report Type: 
  Country: None (occurrence: None)
  Receive Date: 20110806
  Receipt Date: 20110504
  Transmission Date: 20111222
  Serious: No
  Sender: FDA-Public Use
  Company Number: US-ABBOTT-11P-163-0723728-00

PATIENT
  Sex: Male
  Weight: 83.99 kg

DRUGS (7)
  1. VYTORIN [Concomitant]
     Indication: BLOOD CHOLESTEROL INCREASED
  2. REMICADE [Concomitant]
     Indication: RHEUMATOID ARTHRITIS
  3. MULTI-VITAMIN [Concomitant]
     Indication: VITAMIN SUPPLEMENTATION
  4. LOVAZA [Concomitant]
     Indication: BLOOD CHOLESTEROL INCREASED
  5. NIASPAN [Suspect]
     Indication: APOLIPOPROTEIN B INCREASED
     Dates: start: 20110201
  6. REMICADE [Concomitant]
     Indication: CROHN'S DISEASE
  7. TOPROL-XL [Concomitant]
     Indication: HYPERTENSION

REACTIONS (4)
  - VISION BLURRED [None]
  - MYALGIA [None]
  - ASTHENIA [None]
  - FLUSHING [None]
